FAERS Safety Report 4450594-5 (Version None)
Quarter: 2004Q3

REPORT INFORMATION
  Report Type: 
  Country: None (occurrence: None)
  Receive Date: 20040913
  Receipt Date: 20040621
  Transmission Date: 20050211
  Serious: No
  Sender: FDA-Public Use
  Company Number: 2004-BP-04947BP(0)

PATIENT
  Age: 53 Year
  Sex: Female
  Weight: 46.3 kg

DRUGS (3)
  1. SPIRIVA [Suspect]
     Indication: CHRONIC OBSTRUCTIVE AIRWAYS DISEASE
     Dosage: 18 MCG (18 MCG, 18 MCG DAILY), IH
     Route: 055
     Dates: start: 20040524, end: 20040610
  2. ADVAIR (SERETIDE MITE) [Concomitant]
  3. ALBUTEROL [Concomitant]

REACTIONS (1)
  - TONGUE HAEMORRHAGE [None]
